FAERS Safety Report 4412529-0 (Version None)
Quarter: 2004Q2

REPORT INFORMATION
  Report Type: 
  Country: None (occurrence: None)
  Receive Date: 20040630
  Receipt Date: 20040323
  Transmission Date: 20050107
  Serious: No
  Sender: FDA-Public Use
  Company Number: 04P-163-0256003-00

PATIENT
  Age: 77 Year
  Sex: Female
  Weight: 78.9259 kg

DRUGS (9)
  1. HUMIRA [Suspect]
     Indication: RHEUMATOID ARTHRITIS
     Dosage: 40 MG, 1 IN 2 WK, SUBCUTANEOUS
     Route: 058
     Dates: start: 20030501
  2. ATORVASTATIN CALCIUM [Concomitant]
  3. METHOTREXATE [Concomitant]
  4. ROFECOXIB [Concomitant]
  5. FOLIC ACID [Concomitant]
  6. RANITIDINE HYDROCHLORIDE [Concomitant]
  7. CALCIUM [Concomitant]
  8. PYRIDOXINE HYDROCHLORIDE [Concomitant]
  9. ISONIAZID [Concomitant]

REACTIONS (2)
  - INFECTION [None]
  - PRODUCTIVE COUGH [None]
